FAERS Safety Report 7079900-2 (Version None)
Quarter: 2010Q4

REPORT INFORMATION
  Report Type: 
  Country: None (occurrence: None)
  Receive Date: 20101102
  Receipt Date: 20101026
  Transmission Date: 20110411
  Serious: No
  Sender: FDA-Public Use
  Company Number: PT-PFIZER INC-2010130901

PATIENT
  Age: 47 Year
  Sex: Female

DRUGS (5)
  1. ZARATOR [Suspect]
     Indication: BLOOD CHOLESTEROL ABNORMAL
     Dosage: 10 MG, UNK
     Route: 048
  2. MICARDIS [Concomitant]
     Indication: HYPERTENSION
     Dosage: 40 MG, 1X/DAY
     Route: 048
  3. XANAX [Concomitant]
     Indication: ANXIETY
     Dosage: 0.5 MG, ALTERNATE DAY
     Route: 048
     Dates: start: 20100101
  4. RISIDON [Concomitant]
     Indication: DIABETES MELLITUS
     Dosage: 1000 MG, 1X/DAY
  5. IRON [Concomitant]
     Indication: ANAEMIA
     Dosage: UNK

REACTIONS (1)
  - BLOOD GLUCOSE DECREASED [None]
